FAERS Safety Report 6330279-0 (Version None)
Quarter: 2009Q3

REPORT INFORMATION
  Report Type: 
  Country: None (occurrence: None)
  Receive Date: 20090827
  Receipt Date: 20090709
  Transmission Date: 20100115
  Serious: No
  Sender: FDA-Public Use
  Company Number: US-KINGPHARMUSA00001-K200900816

PATIENT
  Age: 80 Year
  Sex: Female

DRUGS (1)
  1. FLECTOR [Suspect]
     Indication: PAIN
     Dosage: 3 PATCH, UNK
     Route: 061
     Dates: start: 20090708, end: 20090709

REACTIONS (2)
  - APPLICATION SITE RASH [None]
  - PAIN [None]
